FAERS Safety Report 11776948 (Version 1)
Quarter: 2015Q4

REPORT INFORMATION
  Report Type: Spontaneous
  Country: US (occurrence: None)
  Receive Date: 20151124
  Receipt Date: 20151124
  Transmission Date: 20160304
  Serious: Yes (Life-Threatening, Hospitalization)
  Sender: FDA-Public Use
  Company Number: None

PATIENT
  Age: 65 Year
  Sex: Male
  Weight: 77.11 kg

DRUGS (3)
  1. PHOTOFRIN [Suspect]
     Active Substance: PORFIMER SODIUM
     Indication: PHOTODYNAMIC THERAPY
     Route: 042
     Dates: start: 20151107, end: 20151107
  2. PROSTRATE MED (LIKE FLOMAX, BUT DIFFERENT BRAND). [Concomitant]
  3. VITAMIN D [Concomitant]
     Active Substance: CHOLECALCIFEROL

REACTIONS (5)
  - Peripheral swelling [None]
  - Photosensitivity reaction [None]
  - Dyspnoea [None]
  - Throat tightness [None]
  - Swelling face [None]

NARRATIVE: CASE EVENT DATE: 20151108
